FAERS Safety Report 4663065-8 (Version None)
Quarter: 2005Q2

REPORT INFORMATION
  Report Type: 
  Country: None (occurrence: None)
  Receive Date: 20050510
  Receipt Date: 20050214
  Transmission Date: 20051028
  Serious: Yes (Other)
  Sender: FDA-Public Use
  Company Number: HQWYE347215FEB05

PATIENT
  Age: 80 Year
  Sex: Female
  Weight: 86.26 kg

DRUGS (5)
  1. INDERAL LA [Suspect]
     Indication: HYPERTENSION
     Dosage: SEE IMAGE
     Route: 048
     Dates: start: 20040601, end: 20041201
  2. INDERAL LA [Suspect]
     Indication: HYPERTENSION
     Dosage: SEE IMAGE
     Route: 048
     Dates: start: 20041201
  3. RAMIPRIL [Concomitant]
  4. ASPIRIN [Concomitant]
  5. VITAMINS (VITAMINS) [Concomitant]

REACTIONS (1)
  - DRUG INEFFECTIVE [None]
